FAERS Safety Report 6882064-9 (Version None)
Quarter: 2010Q3

REPORT INFORMATION
  Report Type: 
  Country: None (occurrence: None)
  Receive Date: 20100729
  Receipt Date: 20100720
  Transmission Date: 20110219
  Serious: Yes (Hospitalization, Disabling)
  Sender: FDA-Public Use
  Company Number: KR-ASTRAZENECA-2010SE33890

PATIENT
  Age: 68 Year
  Sex: Male

DRUGS (2)
  1. BUPIVACAINE HCL [Suspect]
     Indication: KNEE ARTHROPLASTY
     Route: 037
  2. FENTANYL [Concomitant]
     Indication: KNEE ARTHROPLASTY

REACTIONS (1)
  - CAUDA EQUINA SYNDROME [None]
